FAERS Safety Report 21609462 (Version 1)
Quarter: 2022Q4

REPORT INFORMATION
  Report Type: Spontaneous
  Country: US (occurrence: US)
  Receive Date: 20221117
  Receipt Date: 20221117
  Transmission Date: 20230112
  Serious: No
  Sender: FDA-Public Use
  Company Number: US-Calliditas-2022CAL00482

PATIENT
  Age: 80 Year
  Sex: Male

DRUGS (1)
  1. TARPEYO [Suspect]
     Active Substance: BUDESONIDE
     Indication: IgA nephropathy
     Dosage: 16 MG (4 MG CAPULES) ONCE DAILY
     Route: 048
     Dates: start: 20221015

REACTIONS (3)
  - Dyspnoea [Unknown]
  - Cardiac discomfort [Unknown]
  - Intentional underdose [Unknown]

NARRATIVE: CASE EVENT DATE: 20221001
